FAERS Safety Report 5427373-5 (Version None)
Quarter: 2007Q4

REPORT INFORMATION
  Report Type: 
  Country: None (occurrence: None)
  Receive Date: 20070823
  Receipt Date: 20070710
  Transmission Date: 20080405
  Serious: Yes (Life-Threatening)
  Sender: FDA-Public Use
  Company Number: 2007US001456

PATIENT
  Age: 23 Year
  Sex: Female
  Weight: 30 kg

DRUGS (17)
  1. AMBISOME [Suspect]
     Indication: BRONCHOPULMONARY ASPERGILLOSIS
     Dosage: 80 MG, UID/QD, IV DRIP; 300 MG, IV DRIP
     Route: 041
     Dates: start: 20070518, end: 20070524
  2. VFEND [Concomitant]
  3. PHYSIO (GLUCOSE, MAGNESIUM CHLORIDE) [Concomitant]
  4. ANHYDROUS, POTASSIUM PHOSPHATE, MONOBASIC, SODIUM CHLORIDE, POTASSIUM [Concomitant]
  5. SLOW-K [Concomitant]
  6. LACTOBACILLUS BIFIDUS, LYOPHILIZED (LACTOBACILLUS BIFIDUS, LYOPHILIZED [Concomitant]
  7. AMOXICILLIN TRIHYDRATE [Concomitant]
  8. FLUMARIN (FLOMOXEF SODIUM) [Concomitant]
  9. SOLUTIONS FOR PARENTERAL NUTRITION [Concomitant]
  10. POTASSIUM (POTASSIUM CHLORIDE) [Concomitant]
  11. FUNGUARD (MICAFUNGIN SODIUM) [Concomitant]
  12. VIT K CAP [Concomitant]
  13. CALCIUM LACTATE (CALCIUM LACTATE) [Concomitant]
  14. FLUVOXAMINE MALEATE [Concomitant]
  15. NITRAZEPAM [Concomitant]
  16. MEILAX (ETHYL LOFLAZEPATE) [Concomitant]
  17. RED BLOOD CELLS [Concomitant]

REACTIONS (1)
  - ELECTROCARDIOGRAM QT PROLONGED [None]
